FAERS Safety Report 4439080-6 (Version None)
Quarter: 2004Q3

REPORT INFORMATION
  Report Type: 
  Country: None (occurrence: None)
  Receive Date: 20040830
  Receipt Date: 20040823
  Transmission Date: 20050211
  Serious: Yes (Other)
  Sender: FDA-Public Use
  Company Number: 2004-08-0642

PATIENT
  Age: 65 Year
  Sex: Male

DRUGS (2)
  1. INTRON A [Suspect]
     Indication: METASTATIC NEOPLASM
     Dosage: SEE IMAGE
  2. DETICENE [Concomitant]

REACTIONS (9)
  - ASTHENIA [None]
  - BIOPSY KIDNEY ABNORMAL [None]
  - DIALYSIS [None]
  - NAUSEA [None]
  - OLIGURIA [None]
  - RENAL FAILURE ACUTE [None]
  - THERAPEUTIC AGENT TOXICITY [None]
  - TUBULOINTERSTITIAL NEPHRITIS [None]
  - VOMITING [None]
